FAERS Safety Report 6484813-0 (Version None)
Quarter: 2009Q4

REPORT INFORMATION
  Report Type: 
  Country: None (occurrence: None)
  Receive Date: 20091209
  Receipt Date: 20090723
  Transmission Date: 20100525
  Serious: No
  Sender: FDA-Public Use
  Company Number: A0799769A

PATIENT
  Age: 46 Year
  Sex: Male
  Weight: 119.5 kg

DRUGS (4)
  1. AVANDAMET [Suspect]
     Dosage: 500MG TWICE PER DAY
     Route: 048
     Dates: start: 20090321
  2. KALETRA [Suspect]
     Dosage: 4TAB PER DAY
     Route: 048
     Dates: start: 20090321
  3. TRUVADA [Suspect]
     Dosage: 1TAB PER DAY
     Route: 048
     Dates: start: 20090321
  4. PAROXETINE [Concomitant]

REACTIONS (2)
  - HYPOAESTHESIA [None]
  - PAIN IN EXTREMITY [None]
